FAERS Safety Report 6602005-9 (Version None)
Quarter: 2010Q1

REPORT INFORMATION
  Report Type: 
  Country: None (occurrence: None)
  Receive Date: 20100225
  Receipt Date: 20100215
  Transmission Date: 20100710
  Serious: Yes (Hospitalization)
  Sender: FDA-Public Use
  Company Number: JP-PFIZER INC-2010021952

PATIENT
  Age: 78 Year
  Sex: Female

DRUGS (2)
  1. SEIBULE [Suspect]
     Indication: DIABETES MELLITUS
     Dosage: 150 MG, UNK
     Route: 048
  2. STARSIS [Concomitant]
     Dosage: 210 MG, UNK
     Route: 048

REACTIONS (1)
  - ILEUS [None]
